FAERS Safety Report 7423056-0 (Version None)
Quarter: 2011Q2

REPORT INFORMATION
  Report Type: 
  Country: None (occurrence: None)
  Receive Date: 20110419
  Receipt Date: 20110411
  Transmission Date: 20111010
  Serious: Yes (Hospitalization)
  Sender: FDA-Public Use
  Company Number: GB-ELI_LILLY_AND_COMPANY-GB201102001465

PATIENT
  Sex: Male
  Weight: 80.7 kg

DRUGS (4)
  1. ALIMTA [Suspect]
     Indication: LUNG ADENOCARCINOMA
     Dosage: 950 MG, UNKNOWN, ONE DOSE ONLY
     Route: 042
     Dates: start: 20100916, end: 20100916
  2. VITAMIN B-12 [Concomitant]
  3. FOLIC ACID [Concomitant]
  4. CISPLATIN [Concomitant]

REACTIONS (3)
  - FLUID OVERLOAD [None]
  - CARDIAC FAILURE [None]
  - PULMONARY OEDEMA [None]
